FAERS Safety Report 9886454 (Version 2)
Quarter: 2014Q2

REPORT INFORMATION
  Report Type: Spontaneous
  Country: US (occurrence: US)
  Receive Date: 20140210
  Receipt Date: 20140421
  Transmission Date: 20141212
  Serious: Yes (Hospitalization)
  Sender: FDA-Public Use
  Company Number: US-GILEAD-2014-0094050

PATIENT
  Sex: Male

DRUGS (2)
  1. LETAIRIS [Suspect]
     Indication: PULMONARY HYPERTENSION
     Dosage: 10 MG, QD
     Route: 065
     Dates: start: 20130206
  2. LETAIRIS [Suspect]
     Indication: PULMONARY EMBOLISM

REACTIONS (3)
  - Syncope [Unknown]
  - Oxygen saturation decreased [Unknown]
  - Dyspnoea [Unknown]
